FAERS Safety Report 9785348 (Version 1)
Quarter: 2013Q4

REPORT INFORMATION
  Report Type: Spontaneous
  Country: US (occurrence: US)
  Receive Date: 20131227
  Receipt Date: 20131227
  Transmission Date: 20140711
  Serious: No
  Sender: FDA-Public Use
  Company Number: US-MYLANLABS-2013S1019490

PATIENT
  Age: 11 Year
  Sex: Male
  Weight: 36.29 kg

DRUGS (1)
  1. LEVETIRACETAM TABLETS [Suspect]
     Indication: CONVULSION
     Route: 048
     Dates: start: 201308, end: 201308

REACTIONS (1)
  - Agitation [Recovered/Resolved]
